FAERS Safety Report 16056071 (Version 1)
Quarter: 2019Q2

REPORT INFORMATION
  Report Type: Spontaneous
  Country: US (occurrence: US)
  Receive Date: 20190308
  Receipt Date: 20190308
  Transmission Date: 20190711
  Serious: Yes (Disabling)
  Sender: FDA-Public Use
  Company Number: None

PATIENT
  Age: 74 Year
  Sex: Female
  Weight: 63.45 kg

DRUGS (5)
  1. LOSARTAN 50MG TAB [Suspect]
     Active Substance: LOSARTAN
     Indication: HYPERTENSION
     Dosage: ?          QUANTITY:1 TABLET(S);?
     Route: 048
  2. AMLODIPINE [Concomitant]
     Active Substance: AMLODIPINE BESYLATE
  3. VITAMIN E AND D [Concomitant]
  4. PURE MULTIVITAMINS [Concomitant]
  5. LIQUID CALCIUM WITH MAGNESIUM [Concomitant]

REACTIONS (7)
  - Ocular discomfort [None]
  - Paranasal sinus discomfort [None]
  - Asthenia [None]
  - Fatigue [None]
  - Anxiety [None]
  - Quality of life decreased [None]
  - Ear discomfort [None]

NARRATIVE: CASE EVENT DATE: 20181203
